FAERS Safety Report 5261856-6 (Version None)
Quarter: 2007Q1

REPORT INFORMATION
  Report Type: 
  Country: None (occurrence: None)
  Receive Date: 20070310
  Receipt Date: 20070226
  Transmission Date: 20070707
  Serious: Yes (Other)
  Sender: FDA-Public Use
  Company Number: PHEH2007US02476

PATIENT
  Age: 73 Year
  Sex: Male

DRUGS (3)
  1. LAMISIL [Suspect]
     Indication: ONYCHOMYCOSIS
     Dosage: 250 MG, QD
     Route: 048
     Dates: start: 20070221, end: 20070226
  2. LAMISIL [Suspect]
     Dates: start: 20070228
  3. CARAFATE [Concomitant]

REACTIONS (2)
  - BLOOD IRON DECREASED [None]
  - MELAENA [None]
